FAERS Safety Report 8213060-7 (Version None)
Quarter: 2012Q1

REPORT INFORMATION
  Report Type: 
  Country: None (occurrence: None)
  Receive Date: 20120315
  Receipt Date: 20120308
  Transmission Date: 20120608
  Serious: Yes (Hospitalization)
  Sender: FDA-Public Use
  Company Number: US-BAYER-2012-024424

PATIENT
  Age: 36 Year

DRUGS (4)
  1. YASMIN [Suspect]
  2. SOMA [Concomitant]
     Dosage: 350 MG, PRN
     Route: 048
  3. LORTAB [Concomitant]
     Dosage: UNK UNK, PRN
     Route: 048
  4. VICODIN [Concomitant]
     Dosage: UNK UNK, PRN
     Route: 048

REACTIONS (2)
  - PULMONARY EMBOLISM [None]
  - DEEP VEIN THROMBOSIS [None]
